FAERS Safety Report 17478872 (Version 1)
Quarter: 2020Q1

REPORT INFORMATION
  Report Type: Spontaneous
  Country: US (occurrence: US)
  Receive Date: 20200229
  Receipt Date: 20200229
  Transmission Date: 20200409
  Serious: Yes (Other)
  Sender: FDA-Public Use
  Company Number: NVSC2020US053491

PATIENT
  Age: 74 Year
  Sex: Male

DRUGS (1)
  1. PROMACTA [Suspect]
     Active Substance: ELTROMBOPAG OLAMINE
     Indication: IMMUNE THROMBOCYTOPENIC PURPURA
     Dosage: UNK UNK, QD
     Route: 048
     Dates: start: 2017, end: 2019

REACTIONS (3)
  - Myelodysplastic syndrome [Recovered/Resolved with Sequelae]
  - Bone cancer [Recovered/Resolved with Sequelae]
  - Platelet count abnormal [Recovered/Resolved with Sequelae]

NARRATIVE: CASE EVENT DATE: 2019
